FAERS Safety Report 6762411-9 (Version None)
Quarter: 2010Q2

REPORT INFORMATION
  Report Type: 
  Country: None (occurrence: None)
  Receive Date: 20100609
  Receipt Date: 20100603
  Transmission Date: 20101027
  Serious: Yes (Other)
  Sender: FDA-Public Use
  Company Number: CH-ROCHE-707199

PATIENT
  Age: 43 Year
  Sex: Female

DRUGS (2)
  1. BEVACIZUMAB [Suspect]
     Indication: COLORECTAL CANCER
     Route: 065
     Dates: start: 20100104, end: 20100510
  2. XELOX [Suspect]
     Indication: COLORECTAL CANCER
     Route: 065
     Dates: start: 20100104, end: 20100510

REACTIONS (1)
  - MALIGNANT NEOPLASM PROGRESSION [None]
